FAERS Safety Report 6896361-4 (Version None)
Quarter: 2010Q3

REPORT INFORMATION
  Report Type: 
  Country: None (occurrence: None)
  Receive Date: 20100802
  Receipt Date: 20090105
  Transmission Date: 20110219
  Serious: Yes (Other)
  Sender: FDA-Public Use
  Company Number: US-PFIZER INC-2009151953

PATIENT
  Sex: Female
  Weight: 43.991 kg

DRUGS (5)
  1. CAMPTOSAR [Suspect]
     Indication: BILE DUCT CANCER
     Dosage: UNK
     Dates: start: 20081219
  2. GEMZAR [Concomitant]
     Dosage: UNK
  3. XANAX [Concomitant]
     Dosage: UNK
  4. LORTAB [Concomitant]
     Dosage: UNK
  5. OXYCODONE [Concomitant]
     Dosage: UNK

REACTIONS (3)
  - DECREASED APPETITE [None]
  - LOWER RESPIRATORY TRACT INFECTION [None]
  - SINUSITIS [None]
